FAERS Safety Report 21532643 (Version 2)
Quarter: 2022Q4

REPORT INFORMATION
  Report Type: Spontaneous
  Country: US (occurrence: None)
  Receive Date: 20221101
  Receipt Date: 20221130
  Transmission Date: 20230113
  Serious: Yes (Other)
  Sender: FDA-Public Use
  Company Number: US-Emmaus Medical, Inc.-EMM202210-000249

PATIENT
  Age: 17 Year
  Sex: Male

DRUGS (2)
  1. ENDARI [Suspect]
     Active Substance: GLUTAMINE
     Indication: Haemoglobin C disease
     Dosage: 10 G
     Route: 048
     Dates: start: 202206
  2. ENDARI [Suspect]
     Active Substance: GLUTAMINE
     Indication: Double heterozygous sickling disorders
     Dosage: 10 G
     Route: 048
     Dates: start: 202210

REACTIONS (5)
  - Necrosis [Unknown]
  - Sickle cell anaemia with crisis [Unknown]
  - Abdominal discomfort [Recovered/Resolved]
  - Nausea [Recovered/Resolved]
  - Product dose omission issue [Unknown]

NARRATIVE: CASE EVENT DATE: 20221001
